FAERS Safety Report 8835416 (Version 1)
Quarter: 2012Q4

REPORT INFORMATION
  Report Type: 
  Country: US (occurrence: US)
  Receive Date: 20121011
  Receipt Date: 20121011
  Transmission Date: 20130627
  Serious: Yes (Other)
  Sender: FDA-Public Use
  Company Number: US-ROCHE-1138983

PATIENT
  Weight: 21.4 kg

DRUGS (2)
  1. PROTROPIN [Suspect]
     Indication: DWARFISM
     Route: 058
     Dates: start: 19910702
  2. PROTROPIN [Suspect]
     Route: 058

REACTIONS (1)
  - Convulsion [Unknown]
